FAERS Safety Report 12781347 (Version 1)
Quarter: 2016Q3

REPORT INFORMATION
  Report Type: Report from Study
  Country: DE (occurrence: DE)
  Receive Date: 20160926
  Receipt Date: 20160926
  Transmission Date: 20161109
  Serious: Yes (Hospitalization)
  Sender: FDA-Public Use
  Company Number: US-ASTRAZENECA-2016SF02169

PATIENT
  Age: 16 Month
  Sex: Female

DRUGS (21)
  1. SYNAGIS [Suspect]
     Active Substance: PALIVIZUMAB
     Indication: HAEMODYNAMIC INSTABILITY
     Route: 030
     Dates: start: 20101022, end: 20101022
  2. SYNAGIS [Suspect]
     Active Substance: PALIVIZUMAB
     Indication: ANTIVIRAL PROPHYLAXIS
     Route: 030
     Dates: start: 20110217, end: 20110217
  3. SYNAGIS [Suspect]
     Active Substance: PALIVIZUMAB
     Indication: HAEMODYNAMIC INSTABILITY
     Route: 030
     Dates: start: 20100924, end: 20100924
  4. SYNAGIS [Suspect]
     Active Substance: PALIVIZUMAB
     Indication: HEART DISEASE CONGENITAL
     Route: 030
     Dates: start: 20110217, end: 20110217
  5. SYNAGIS [Suspect]
     Active Substance: PALIVIZUMAB
     Indication: HEART DISEASE CONGENITAL
     Route: 030
     Dates: start: 20101122, end: 20101122
  6. SYNAGIS [Suspect]
     Active Substance: PALIVIZUMAB
     Indication: HEART DISEASE CONGENITAL
     Route: 030
     Dates: start: 20101221, end: 20101221
  7. SYNAGIS [Suspect]
     Active Substance: PALIVIZUMAB
     Indication: HEART DISEASE CONGENITAL
     Route: 030
     Dates: start: 20110121, end: 20110121
  8. SYNAGIS [Suspect]
     Active Substance: PALIVIZUMAB
     Indication: HAEMODYNAMIC INSTABILITY
     Route: 030
     Dates: start: 20110321, end: 20110321
  9. SYNAGIS [Suspect]
     Active Substance: PALIVIZUMAB
     Indication: HEART DISEASE CONGENITAL
     Route: 030
     Dates: start: 20110321, end: 20110321
  10. SYNAGIS [Suspect]
     Active Substance: PALIVIZUMAB
     Indication: ANTIVIRAL PROPHYLAXIS
     Route: 030
     Dates: start: 20100924, end: 20100924
  11. SYNAGIS [Suspect]
     Active Substance: PALIVIZUMAB
     Indication: HEART DISEASE CONGENITAL
     Route: 030
     Dates: start: 20100924, end: 20100924
  12. SYNAGIS [Suspect]
     Active Substance: PALIVIZUMAB
     Indication: ANTIVIRAL PROPHYLAXIS
     Route: 030
     Dates: start: 20101022, end: 20101022
  13. SYNAGIS [Suspect]
     Active Substance: PALIVIZUMAB
     Indication: HEART DISEASE CONGENITAL
     Route: 030
     Dates: start: 20101022, end: 20101022
  14. SYNAGIS [Suspect]
     Active Substance: PALIVIZUMAB
     Indication: HAEMODYNAMIC INSTABILITY
     Route: 030
     Dates: start: 20101122, end: 20101122
  15. SYNAGIS [Suspect]
     Active Substance: PALIVIZUMAB
     Indication: ANTIVIRAL PROPHYLAXIS
     Route: 030
     Dates: start: 20101221, end: 20101221
  16. SYNAGIS [Suspect]
     Active Substance: PALIVIZUMAB
     Indication: HAEMODYNAMIC INSTABILITY
     Route: 030
     Dates: start: 20110121, end: 20110121
  17. SYNAGIS [Suspect]
     Active Substance: PALIVIZUMAB
     Indication: HAEMODYNAMIC INSTABILITY
     Route: 030
     Dates: start: 20110217, end: 20110217
  18. SYNAGIS [Suspect]
     Active Substance: PALIVIZUMAB
     Indication: ANTIVIRAL PROPHYLAXIS
     Route: 030
     Dates: start: 20101122, end: 20101122
  19. SYNAGIS [Suspect]
     Active Substance: PALIVIZUMAB
     Indication: HAEMODYNAMIC INSTABILITY
     Route: 030
     Dates: start: 20101221, end: 20101221
  20. SYNAGIS [Suspect]
     Active Substance: PALIVIZUMAB
     Indication: ANTIVIRAL PROPHYLAXIS
     Route: 030
     Dates: start: 20110121, end: 20110121
  21. SYNAGIS [Suspect]
     Active Substance: PALIVIZUMAB
     Indication: ANTIVIRAL PROPHYLAXIS
     Route: 030
     Dates: start: 20110321, end: 20110321

REACTIONS (2)
  - Pneumonia respiratory syncytial viral [Unknown]
  - Respiratory failure [Unknown]

NARRATIVE: CASE EVENT DATE: 201101
